FAERS Safety Report 22186010 (Version 1)
Quarter: 2023Q2

REPORT INFORMATION
  Report Type: Spontaneous
  Country: CN (occurrence: CN)
  Receive Date: 20230407
  Receipt Date: 20230407
  Transmission Date: 20230721
  Serious: Yes (Other)
  Sender: FDA-Public Use
  Company Number: None

PATIENT
  Age: 33 Year
  Sex: Female
  Weight: 50 kg

DRUGS (4)
  1. CYCLOPHOSPHAMIDE [Suspect]
     Active Substance: CYCLOPHOSPHAMIDE
     Indication: Breast neoplasm
     Dosage: 0.9 G, QD, DILUTED WITH 500 ML OF 0.9% SODIUM CHLORIDE, FIRST CHEMOTHERAPY
     Route: 041
     Dates: start: 20230308, end: 20230308
  2. EPIRUBICIN HYDROCHLORIDE [Suspect]
     Active Substance: EPIRUBICIN HYDROCHLORIDE
     Indication: Breast neoplasm
     Dosage: 150 MG, QD, DILUTED WITH 500 ML OF 0.9% SODIUM CHLORIDE, FIRST CHEMOTHERAPY
     Route: 041
     Dates: start: 20230308, end: 20230308
  3. SODIUM CHLORIDE [Suspect]
     Active Substance: SODIUM CHLORIDE
     Indication: Medication dilution
     Dosage: 500 ML, QD, USED TO DILUTE 0.9 G OF CYCLOPHOSPHAMIDE, FIRST CHEMOTHERAPY
     Route: 041
     Dates: start: 20230308, end: 20230308
  4. SODIUM CHLORIDE [Suspect]
     Active Substance: SODIUM CHLORIDE
     Dosage: 500 ML, QD, USED TO DILUTE 150 MG OF EPIRUBICIN HYDROCHLORIDE, FIRST CHEMOTHERAPY
     Route: 041
     Dates: start: 20230308, end: 20230308

REACTIONS (10)
  - Depressed level of consciousness [Recovering/Resolving]
  - Unresponsive to stimuli [Unknown]
  - Cerebral infarction [Unknown]
  - Magnetic resonance imaging head abnormal [Unknown]
  - Cold sweat [Recovering/Resolving]
  - Musculoskeletal stiffness [Unknown]
  - Irritability [Unknown]
  - Speech disorder [Unknown]
  - Staring [Unknown]
  - Vomiting [Recovering/Resolving]

NARRATIVE: CASE EVENT DATE: 20230310
